FAERS Safety Report 13202032 (Version 1)
Quarter: 2017Q1

REPORT INFORMATION
  Report Type: Other
  Country: JP (occurrence: IT)
  Receive Date: 20170209
  Receipt Date: 20170209
  Transmission Date: 20170428
  Serious: No
  Sender: FDA-Public Use
  Company Number: IT-GRANULES INDIA LIMITED-1062909

PATIENT
  Age: 36 Year
  Sex: Female

DRUGS (3)
  1. GLICLAZIDE [Suspect]
     Active Substance: GLICLAZIDE
     Route: 065
  2. METFORMIN HYDROCHLORIDE. [Suspect]
     Active Substance: METFORMIN HYDROCHLORIDE
     Indication: DIABETES MELLITUS
     Route: 065
  3. BASAL/BOLUS INSULIN [Suspect]
     Active Substance: INSULIN NOS
     Route: 065

REACTIONS (5)
  - Glycosuria [Unknown]
  - Caesarean section [None]
  - Twin pregnancy [Unknown]
  - Exposure during pregnancy [Unknown]
  - Insulin C-peptide decreased [Unknown]
